FAERS Safety Report 8225909-2 (Version None)
Quarter: 2012Q1

REPORT INFORMATION
  Report Type: 
  Country: None (occurrence: None)
  Receive Date: 20120321
  Receipt Date: 20120315
  Transmission Date: 20120608
  Serious: Yes (Life-Threatening)
  Sender: FDA-Public Use
  Company Number: FR-ROCHE-1036956

PATIENT
  Sex: Male
  Weight: 70 kg

DRUGS (7)
  1. VISMODEGIB [Suspect]
     Indication: BASAL CELL CARCINOMA
     Route: 048
     Dates: start: 20111207, end: 20120115
  2. ACETAMINOPHEN [Suspect]
     Dates: start: 20120101
  3. ACARBOSE [Concomitant]
  4. OMEPRAZOLE [Concomitant]
  5. ACETAMINOPHEN [Suspect]
     Indication: PRODUCT USED FOR UNKNOWN INDICATION
     Dates: start: 20111201
  6. AMARYL [Concomitant]
  7. ZOCOR [Concomitant]

REACTIONS (1)
  - HEPATITIS [None]
